FAERS Safety Report 4422244-5 (Version None)
Quarter: 2004Q3

REPORT INFORMATION
  Report Type: 
  Country: None (occurrence: None)
  Receive Date: 20040806
  Receipt Date: 20040722
  Transmission Date: 20050211
  Serious: Yes (Other)
  Sender: FDA-Public Use
  Company Number: 2004-0007305

PATIENT
  Sex: Female

DRUGS (6)
  1. TENOFOVIR DISOPROXIL FUMARATE [Suspect]
     Indication: HIV INFECTION
     Dates: start: 20031101, end: 20040701
  2. LEXIVA (PROTEASE INHIBITORS) [Concomitant]
  3. RITONAVIR (RITONAVIR) [Concomitant]
  4. VIDEX [Concomitant]
  5. EFAVIRENZ (EFAVIRENZ) [Concomitant]
  6. ATAZANAVIR (ATAZANAVIR) [Concomitant]

REACTIONS (1)
  - NEPHROLITHIASIS [None]
